FAERS Safety Report 16367789 (Version 1)
Quarter: 2019Q2

REPORT INFORMATION
  Report Type: Spontaneous
  Country: US (occurrence: US)
  Receive Date: 20190423
  Receipt Date: 20190423
  Transmission Date: 20190711
  Serious: Yes (Hospitalization)
  Sender: FDA-Public Use
  Company Number: None

PATIENT
  Age: 10 Year
  Sex: Male

DRUGS (3)
  1. SILDENAFIL 20 MG [Suspect]
     Active Substance: SILDENAFIL
     Route: 048
     Dates: start: 20180130
  2. ENALAPRIL [Concomitant]
     Active Substance: ENALAPRIL
  3. LASIX [Concomitant]
     Active Substance: FUROSEMIDE

REACTIONS (1)
  - Cardiac disorder [None]

NARRATIVE: CASE EVENT DATE: 20190417
